FAERS Safety Report 9290699 (Version 1)
Quarter: 2013Q2

REPORT INFORMATION
  Report Type: Report from Study
  Country: US (occurrence: US)
  Receive Date: 20130515
  Receipt Date: 20130515
  Transmission Date: 20140414
  Serious: Yes (Hospitalization)
  Sender: FDA-Public Use
  Company Number: PHEH2013US010347

PATIENT
  Sex: Female

DRUGS (1)
  1. FANAPT [Suspect]

REACTIONS (2)
  - Bipolar disorder [Unknown]
  - Depression [Unknown]
